FAERS Safety Report 23664383 (Version 1)
Quarter: 2024Q1

REPORT INFORMATION
  Report Type: Spontaneous
  Country: US (occurrence: US)
  Receive Date: 20240322
  Receipt Date: 20240322
  Transmission Date: 20240409
  Serious: Yes (Other)
  Sender: FDA-Public Use
  Company Number: US-JNJFOC-20240340090

PATIENT
  Sex: Male

DRUGS (1)
  1. TALVEY [Suspect]
     Active Substance: TALQUETAMAB-TGVS
     Indication: Product used for unknown indication
     Route: 058

REACTIONS (11)
  - Choking [Recovering/Resolving]
  - Pyrexia [Recovered/Resolved]
  - Feeling abnormal [Recovered/Resolved]
  - Onychomadesis [Recovering/Resolving]
  - Onychoclasis [Recovering/Resolving]
  - Rash [Recovered/Resolved]
  - Injection site erythema [Unknown]
  - Decreased appetite [Recovering/Resolving]
  - Ageusia [Recovering/Resolving]
  - Dry mouth [Not Recovered/Not Resolved]
  - Dysphagia [Recovering/Resolving]
